FAERS Safety Report 9090986 (Version 1)
Quarter: 2013Q1

REPORT INFORMATION
  Report Type: Report from Study
  Country: US (occurrence: US)
  Receive Date: 20130218
  Receipt Date: 20130218
  Transmission Date: 20140127
  Serious: No
  Sender: FDA-Public Use
  Company Number: US-ABBOTT-12P-163-0944363-00

PATIENT
  Sex: Female
  Weight: 63.56 kg

DRUGS (4)
  1. SIMCOR 1000MG/40MG [Suspect]
     Indication: LOW DENSITY LIPOPROTEIN INCREASED
     Dosage: 1000/40 MG
  2. SIMCOR 1000MG/40MG [Suspect]
     Indication: ILL-DEFINED DISORDER
  3. UNKNOWN MEDICATION [Concomitant]
     Indication: CONVULSION
  4. OTHER UNKNOWN MEDICATIONS [Concomitant]
     Indication: PRODUCT USED FOR UNKNOWN INDICATION

REACTIONS (4)
  - Flushing [Recovered/Resolved]
  - Skin burning sensation [Unknown]
  - Rash macular [Unknown]
  - Pruritus [Unknown]
